FAERS Safety Report 16347000 (Version 1)
Quarter: 2019Q2

REPORT INFORMATION
  Report Type: Spontaneous
  Country: FR (occurrence: FR)
  Receive Date: 20190523
  Receipt Date: 20190523
  Transmission Date: 20190711
  Serious: Yes (Hospitalization, Other)
  Sender: FDA-Public Use
  Company Number: FR-AUROBINDO-AUR-APL-2019-026870

PATIENT

DRUGS (24)
  1. SODIUM CHLORIDE. [Suspect]
     Active Substance: SODIUM CHLORIDE
     Indication: GASTROINTESTINAL DISORDER
     Dosage: 26 MILLILITER
     Route: 042
  2. GLUCOSE [Suspect]
     Active Substance: DEXTROSE
     Indication: PARENTERAL NUTRITION
     Dosage: UNK
     Route: 065
  3. MAGNESIUM [Suspect]
     Active Substance: MAGNESIUM
     Indication: GASTROINTESTINAL DISORDER
     Dosage: 16 UNK
     Route: 042
     Dates: start: 201807
  4. VAMINOLACT [Suspect]
     Active Substance: ALANINE\ARGININE\ASPARTIC ACID\CYSTEINE HYDROCHLORIDE\GLUTAMIC ACID\GLYCINE\HISTIDINE\ISOLEUCINE\LEUCINE\LYSINE ACETATE\METHIONINE\PHENYLALANINE\PROLINE\SERINE\TAURINE\THREONINE\TRYPTOPHAN\TYROSINE\VALINE
     Indication: GASTROINTESTINAL DISORDER
     Dosage: 596 MILLILITER
     Route: 042
     Dates: start: 201807
  5. POTASSIUM DIHYDROGEN PHOSPHATE [Suspect]
     Active Substance: POTASSIUM PHOSPHATE, MONOBASIC
     Indication: GASTROINTESTINAL DISORDER
     Dosage: UNK
     Route: 065
  6. SODIUM LACTATE. [Suspect]
     Active Substance: SODIUM LACTATE
     Indication: GASTROINTESTINAL DISORDER
     Dosage: UNK
     Route: 065
  7. ZINC AGUETTANT [Suspect]
     Active Substance: ZINC GLUCONATE
     Indication: GASTROINTESTINAL DISORDER
     Dosage: 5.6 MILLILITER
     Route: 042
     Dates: start: 201807
  8. SODIUM CHLORIDE. [Suspect]
     Active Substance: SODIUM CHLORIDE
     Indication: PARENTERAL NUTRITION
     Dosage: UNK
     Route: 065
  9. POTASSIUM DIHYDROGEN PHOSPHATE [Suspect]
     Active Substance: POTASSIUM PHOSPHATE, MONOBASIC
     Indication: PARENTERAL NUTRITION
     Dosage: 17 MILLILITER
     Route: 042
     Dates: start: 201807
  10. ZINC AGUETTANT [Suspect]
     Active Substance: ZINC GLUCONATE
     Indication: PARENTERAL NUTRITION
     Dosage: UNK
     Route: 065
  11. POTASSIUM CHLORIDE. [Suspect]
     Active Substance: POTASSIUM CHLORIDE
     Indication: GASTROINTESTINAL DISORDER
     Dosage: 25 MILLILITER
     Route: 042
     Dates: start: 201807
  12. RANITIDINE. [Suspect]
     Active Substance: RANITIDINE
     Indication: PARENTERAL NUTRITION
     Dosage: UNK
     Route: 065
  13. MAGNESIUM [Suspect]
     Active Substance: MAGNESIUM
     Indication: PARENTERAL NUTRITION
     Dosage: 16 MILLILITER
     Route: 042
     Dates: start: 201807
  14. CALCIUM GLUCONATE. [Suspect]
     Active Substance: CALCIUM GLUCONATE
     Indication: PARENTERAL NUTRITION
     Dosage: 30 MILLILITER
     Route: 042
     Dates: start: 201807
  15. SODIUM LACTATE. [Suspect]
     Active Substance: SODIUM LACTATE
     Indication: PARENTERAL NUTRITION
     Dosage: 122 MILLILITER
     Route: 042
     Dates: start: 201807
  16. RANITIDINE. [Suspect]
     Active Substance: RANITIDINE
     Indication: GASTROINTESTINAL DISORDER
     Dosage: 13 MILLILITER
     Route: 042
     Dates: start: 201807
  17. POTASSIUM CHLORIDE. [Suspect]
     Active Substance: POTASSIUM CHLORIDE
     Indication: PARENTERAL NUTRITION
     Dosage: UNK
     Route: 065
  18. GLUCOSE [Suspect]
     Active Substance: DEXTROSE
     Indication: GASTROINTESTINAL DISORDER
     Dosage: 444 MILLILITER
     Route: 042
  19. VAMINOLACT [Suspect]
     Active Substance: ALANINE\ARGININE\ASPARTIC ACID\CYSTEINE HYDROCHLORIDE\GLUTAMIC ACID\GLYCINE\HISTIDINE\ISOLEUCINE\LEUCINE\LYSINE ACETATE\METHIONINE\PHENYLALANINE\PROLINE\SERINE\TAURINE\THREONINE\TRYPTOPHAN\TYROSINE\VALINE
     Indication: PARENTERAL NUTRITION
     Dosage: UNK
     Route: 065
  20. CALCIUM GLUCONATE. [Suspect]
     Active Substance: CALCIUM GLUCONATE
     Indication: GASTROINTESTINAL DISORDER
     Dosage: UNK
     Route: 065
  21. CERNEVIT [Suspect]
     Active Substance: VITAMINS
     Indication: GASTROINTESTINAL DISORDER
     Dosage: UNK
     Route: 065
  22. SMOFLIPID [Suspect]
     Active Substance: FISH OIL\MEDIUM-CHAIN TRIGLYCERIDES\OLIVE OIL\SOYBEAN OIL
     Indication: GASTROINTESTINAL DISORDER
     Dosage: 167 MILLILITER
     Route: 042
     Dates: start: 201807
  23. SMOFLIPID [Suspect]
     Active Substance: FISH OIL\MEDIUM-CHAIN TRIGLYCERIDES\OLIVE OIL\SOYBEAN OIL
     Indication: PARENTERAL NUTRITION
     Dosage: UNK
     Route: 065
  24. CERNEVIT [Suspect]
     Active Substance: VITAMINS
     Indication: PARENTERAL NUTRITION
     Dosage: 5.6 MILLILITER
     Route: 042
     Dates: start: 201807

REACTIONS (6)
  - Staphylococcal bacteraemia [Recovering/Resolving]
  - Device related infection [Recovered/Resolved]
  - Product commingling [Unknown]
  - Cough [Unknown]
  - Enterobacter bacteraemia [Recovering/Resolving]
  - Wrong patient received product [Unknown]

NARRATIVE: CASE EVENT DATE: 201807
